FAERS Safety Report 14983837 (Version 3)
Quarter: 2018Q3

REPORT INFORMATION
  Report Type: Spontaneous
  Country: BE (occurrence: BE)
  Receive Date: 20180607
  Receipt Date: 20180703
  Transmission Date: 20181010
  Serious: Yes (Death)
  Sender: FDA-Public Use
  Company Number: BE-JNJFOC-20180601778

PATIENT
  Age: 67 Year
  Sex: Male
  Weight: 120 kg

DRUGS (13)
  1. PROPRANOLOL [Concomitant]
     Active Substance: PROPRANOLOL HYDROCHLORIDE
  2. COVERSYL PLUS [Concomitant]
     Active Substance: INDAPAMIDE\PERINDOPRIL
  3. STEOVIT FORTE [Concomitant]
  4. PROMAGNOR [Concomitant]
     Active Substance: MAGNESIUM
  5. BURINEX [Concomitant]
     Active Substance: BUMETANIDE
  6. PRIMIDONE. [Concomitant]
     Active Substance: PRIMIDONE
  7. ASAFLOW [Concomitant]
     Active Substance: ASPIRIN
  8. METFORMINE [Concomitant]
     Active Substance: METFORMIN HYDROCHLORIDE
  9. INUVAIR [Concomitant]
     Active Substance: BECLOMETHASONE DIPROPIONATE\FORMOTEROL FUMARATE
  10. GABAPENTINE [Concomitant]
     Active Substance: GABAPENTIN
  11. DARZALEX [Suspect]
     Active Substance: DARATUMUMAB
     Indication: PLASMA CELL MYELOMA
     Route: 042
     Dates: start: 20180601, end: 20180601
  12. LORMETAZEPAM [Concomitant]
     Active Substance: LORMETAZEPAM
  13. SPIRIVA [Concomitant]
     Active Substance: TIOTROPIUM BROMIDE MONOHYDRATE

REACTIONS (3)
  - Laryngeal oedema [Fatal]
  - Anaphylactic shock [Fatal]
  - Infusion related reaction [Fatal]

NARRATIVE: CASE EVENT DATE: 20180601
